FAERS Safety Report 14781359 (Version 1)
Quarter: 2018Q2

REPORT INFORMATION
  Report Type: Spontaneous
  Country: FR (occurrence: FR)
  Receive Date: 20180419
  Receipt Date: 20180419
  Transmission Date: 20180711
  Serious: Yes (Hospitalization)
  Sender: FDA-Public Use
  Company Number: FR-TEVA-2018-FR-882489

PATIENT
  Age: 91 Year
  Sex: Male
  Weight: 61.5 kg

DRUGS (8)
  1. NORSET 15 MG FILM-COATED TABLETS [Suspect]
     Active Substance: MIRTAZAPINE
     Indication: DEPRESSION
     Route: 048
  2. OROCAL D3, SUCKING TABLET [Concomitant]
     Indication: HYPOVITAMINOSIS
     Dosage: 2 DOSAGE FORMS DAILY;
     Route: 048
  3. NEURONTIN 300 MG, CAPSULE [Concomitant]
     Indication: EPILEPSY
     Dosage: 1 DOSAGE FORMS DAILY;
     Route: 048
  4. LASILIX [Suspect]
     Active Substance: FUROSEMIDE
     Indication: HYPERTENSION
     Dosage: 1 DOSAGE FORMS DAILY;
     Route: 048
  5. INNOVAIR [Concomitant]
     Active Substance: BECLOMETHASONE DIPROPIONATE\FORMOTEROL
     Indication: CHRONIC OBSTRUCTIVE PULMONARY DISEASE
     Dosage: 2 DOSAGE FORMS DAILY;
     Route: 055
  6. VALIUM 1 PER CENT ROCK, ORAL SOLUTION IN DROP [Concomitant]
     Indication: EPILEPSY
     Dosage: 9 GTT DAILY;
     Route: 048
  7. ESOMEPRAZOLE [Suspect]
     Active Substance: ESOMEPRAZOLE
     Indication: PRODUCT USED FOR UNKNOWN INDICATION
     Dosage: 40 MILLIGRAM DAILY;
     Route: 048
  8. FLECTOR [Concomitant]
     Active Substance: DICLOFENAC EPOLAMINE
     Dosage: IF NECESSARY
     Route: 048

REACTIONS (3)
  - Hyponatraemia [Recovered/Resolved]
  - Inappropriate antidiuretic hormone secretion [Recovered/Resolved]
  - General physical health deterioration [Recovering/Resolving]
